FAERS Safety Report 9742465 (Version 1)
Quarter: 2013Q4

REPORT INFORMATION
  Report Type: Spontaneous
  Country: US (occurrence: US)
  Receive Date: 20131210
  Receipt Date: 20131210
  Transmission Date: 20140711
  Serious: No
  Sender: FDA-Public Use
  Company Number: US-ABBVIE-13P-163-1076641-00

PATIENT
  Sex: Female
  Weight: 72.64 kg

DRUGS (5)
  1. VICODIN [Suspect]
     Indication: PAIN
     Dosage: 7.5/750 MG
     Dates: start: 2007
  2. LYRICA [Suspect]
     Indication: FIBROMYALGIA
     Dates: start: 2011
  3. LYRICA [Suspect]
     Dosage: DOSE INCREASED
     Dates: start: 201303
  4. DURAGESIC [Suspect]
     Indication: PAIN
     Route: 062
  5. BACLOFEN [Suspect]
     Indication: PAIN
     Dosage: AT NIGHT

REACTIONS (2)
  - Fibromyalgia [Unknown]
  - Systemic lupus erythematosus [Unknown]
